FAERS Safety Report 15950611 (Version 11)
Quarter: 2022Q2

REPORT INFORMATION
  Report Type: Spontaneous
  Country: GB (occurrence: None)
  Receive Date: 20190212
  Receipt Date: 20220627
  Transmission Date: 20220721
  Serious: Yes (Life-Threatening, Hospitalization, Disabling, Other)
  Sender: FDA-Public Use
  Company Number: 2019SE21090

PATIENT
  Age: 54 Year
  Sex: Female
  Weight: 74 kg

DRUGS (13)
  1. OMEPRAZOLE [Interacting]
     Active Substance: OMEPRAZOLE
     Indication: Gastrooesophageal reflux disease
     Dosage: 200 MILLIGRAM, QD200.0MG UNKNOWN
     Route: 065
  2. OMEPRAZOLE [Interacting]
     Active Substance: OMEPRAZOLE
     Indication: Reflux laryngitis
     Dosage: 200 MILLIGRAM, QD200.0MG UNKNOWN
     Route: 065
  3. OMEPRAZOLE [Interacting]
     Active Substance: OMEPRAZOLE
     Indication: Gastrooesophageal reflux disease
     Dosage: 20 MILLIGRAM20.0MG UNKNOWN
     Route: 048
     Dates: start: 20190118, end: 20190120
  4. OMEPRAZOLE [Interacting]
     Active Substance: OMEPRAZOLE
     Indication: Reflux laryngitis
     Dosage: 20 MILLIGRAM20.0MG UNKNOWN
     Route: 048
     Dates: start: 20190118, end: 20190120
  5. TRIMETHOPRIM [Interacting]
     Active Substance: TRIMETHOPRIM
     Indication: Urinary tract infection
     Dosage: 200 MG, QD (200 MILLIGRAM, ONCE A DAY)
     Route: 048
     Dates: start: 20190118, end: 20190120
  6. TRIMETHOPRIM [Interacting]
     Active Substance: TRIMETHOPRIM
     Indication: Urinary tract infection
     Dosage: 1200 MILLIGRAM, UNK
     Route: 065
  7. SOLIFENACIN [Interacting]
     Active Substance: SOLIFENACIN
     Indication: Product used for unknown indication
     Dosage: UNKNOWN
     Route: 065
  8. DOMPERIDONE [Suspect]
     Active Substance: DOMPERIDONE
     Indication: Product used for unknown indication
     Dosage: UNKNOWN
     Route: 048
  9. LANSOPRAZOLE [Suspect]
     Active Substance: LANSOPRAZOLE
     Indication: Product used for unknown indication
     Dosage: UNKNOWN
     Route: 065
  10. MODERNA COVID-19 VACCINE [Suspect]
     Active Substance: ELASOMERAN
     Indication: COVID-19 immunisation
     Dosage: 1 DOSAGE FORM, SINGLE1.0DF ONCE/SINGLE ADMINISTRATION
     Route: 065
     Dates: start: 20211204, end: 20211204
  11. DULOXETINE [Concomitant]
     Active Substance: DULOXETINE
     Indication: Product used for unknown indication
     Dosage: UNKNOWN
     Route: 065
  12. BECLOMETHASONE DIPROPIONATE [Concomitant]
     Active Substance: BECLOMETHASONE DIPROPIONATE
     Indication: Product used for unknown indication
     Dosage: UNKNOWN
     Route: 065
  13. TRIMETHOPRIM [Concomitant]
     Active Substance: TRIMETHOPRIM
     Indication: Urinary tract infection

REACTIONS (21)
  - Blood potassium decreased [Unknown]
  - Irritable bowel syndrome [Unknown]
  - Drug interaction [Unknown]
  - Mucosal inflammation [Recovered/Resolved]
  - Genital ulceration [Recovered/Resolved]
  - Genital pain [Recovered/Resolved]
  - Oral pain [Recovering/Resolving]
  - Contusion [Not Recovered/Not Resolved]
  - Illness [Recovering/Resolving]
  - Nightmare [Not Recovered/Not Resolved]
  - Food poisoning [Not Recovered/Not Resolved]
  - Condition aggravated [Unknown]
  - Feeling abnormal [Unknown]
  - Gastrointestinal pain [Not Recovered/Not Resolved]
  - Blood sodium decreased [Unknown]
  - Diarrhoea [Recovered/Resolved]
  - Peripheral swelling [Unknown]
  - Abdominal pain [Recovered/Resolved]
  - Abdominal pain upper [Recovering/Resolving]
  - Vomiting [Unknown]
  - Malaise [Unknown]

NARRATIVE: CASE EVENT DATE: 20190121
